FAERS Safety Report 13092438 (Version 2)
Quarter: 2017Q1

REPORT INFORMATION
  Report Type: Spontaneous
  Country: US (occurrence: US)
  Receive Date: 20170106
  Receipt Date: 20170314
  Transmission Date: 20170428
  Serious: No
  Sender: FDA-Public Use
  Company Number: US-JNJFOC-20161117613

PATIENT
  Sex: Male

DRUGS (1)
  1. TYLENOL REGULAR STRENGTH [Suspect]
     Active Substance: ACETAMINOPHEN
     Indication: PAIN
     Dosage: 2 TIMES, 1 CAPLET TAKEN AT 3PM AND 1 TAKEN AT 6:30PM
     Route: 048

REACTIONS (3)
  - Inappropriate schedule of drug administration [Unknown]
  - Somnolence [Recovered/Resolved]
  - Incorrect dose administered [Unknown]
